FAERS Safety Report 11464887 (Version 2)
Quarter: 2015Q4

REPORT INFORMATION
  Report Type: Report from Study
  Country: BR (occurrence: BR)
  Receive Date: 20150907
  Receipt Date: 20151208
  Transmission Date: 20160304
  Serious: Yes (Other)
  Sender: FDA-Public Use
  Company Number: BR-ABBVIE-15P-020-1455493-00

PATIENT
  Age: 56 Year
  Sex: Female
  Weight: 62 kg

DRUGS (1)
  1. HUMIRA [Suspect]
     Active Substance: ADALIMUMAB
     Indication: RHEUMATOID ARTHRITIS
     Route: 058
     Dates: start: 20140601

REACTIONS (12)
  - Nervousness [Unknown]
  - Mobility decreased [Not Recovered/Not Resolved]
  - Rheumatoid arthritis [Recovering/Resolving]
  - Activities of daily living impaired [Not Recovered/Not Resolved]
  - Atrophy [Not Recovered/Not Resolved]
  - Tendon pain [Not Recovered/Not Resolved]
  - Rheumatoid factor increased [Not Recovered/Not Resolved]
  - Stress [Unknown]
  - Peripheral swelling [Not Recovered/Not Resolved]
  - Unevaluable event [Not Recovered/Not Resolved]
  - Pain in extremity [Not Recovered/Not Resolved]
  - Malaise [Not Recovered/Not Resolved]

NARRATIVE: CASE EVENT DATE: 201504
